FAERS Safety Report 5593866-3 (Version None)
Quarter: 2008Q1

REPORT INFORMATION
  Report Type: 
  Country: None (occurrence: None)
  Receive Date: 20080116
  Receipt Date: 20080111
  Transmission Date: 20080703
  Serious: Yes (Hospitalization)
  Sender: FDA-Public Use
  Company Number: US-BOEHRINGER INGELHEIM PHARMACEUTICALS, INC.-2008-BP-00656BP

PATIENT
  Sex: Female

DRUGS (13)
  1. SPIRIVA [Suspect]
     Indication: CHRONIC OBSTRUCTIVE PULMONARY DISEASE
     Route: 055
     Dates: start: 20030101
  2. SPIRIVA [Suspect]
     Indication: ASTHMA
  3. SIMVASTATIN [Concomitant]
  4. BUSPAR [Concomitant]
  5. EFFEXOR [Concomitant]
  6. CHLORAZEPAM [Concomitant]
  7. ACCOLATE [Concomitant]
     Indication: MULTIPLE ALLERGIES
  8. THEOPHYLLINE [Concomitant]
  9. MIRTAZAPINE [Concomitant]
  10. RANITIDINE [Concomitant]
  11. PRILOSEC [Concomitant]
  12. NASONEX [Concomitant]
  13. FOSAMAX [Concomitant]

REACTIONS (2)
  - ASTHMA [None]
  - PNEUMONIA [None]
